FAERS Safety Report 8075468-2 (Version None)
Quarter: 2012Q1

REPORT INFORMATION
  Report Type: 
  Country: None (occurrence: None)
  Receive Date: 20120120
  Receipt Date: 20111031
  Transmission Date: 20120608
  Serious: Yes (Other)
  Sender: FDA-Public Use
  Company Number: 2011P1010016

PATIENT

DRUGS (1)
  1. METOPROLOL (NO PREF. NAME) [Suspect]

REACTIONS (1)
  - HAEMOLYTIC ANAEMIA [None]
